FAERS Safety Report 24225850 (Version 2)
Quarter: 2024Q3

REPORT INFORMATION
  Report Type: Spontaneous
  Country: US (occurrence: US)
  Receive Date: 20240820
  Receipt Date: 20240820
  Transmission Date: 20241017
  Serious: Yes (Death)
  Sender: DR REDDYS
  Company Number: US-DRL-USA-LIT/USA/24/0011825

PATIENT
  Age: 74 Year
  Sex: Male

DRUGS (1)
  1. POSACONAZOLE [Suspect]
     Active Substance: POSACONAZOLE
     Indication: Fungal infection
     Dosage: VIA NASOGASTRIC TUBE
     Route: 048

REACTIONS (3)
  - Death [Fatal]
  - Drug level below therapeutic [Unknown]
  - Wrong technique in product usage process [Unknown]
